FAERS Safety Report 6521146-8 (Version None)
Quarter: 2009Q4

REPORT INFORMATION
  Report Type: 
  Country: None (occurrence: None)
  Receive Date: 20091222
  Receipt Date: 20091217
  Transmission Date: 20100525
  Serious: Yes (Other)
  Sender: FDA-Public Use
  Company Number: 2009SP029580

PATIENT
  Sex: Female

DRUGS (16)
  1. MIRALAX [Suspect]
     Indication: CONSTIPATION
     Dosage: TID;PO
     Route: 048
  2. DILTIAZEM HCL [Suspect]
  3. NORVASC [Suspect]
  4. PLAVIX [Concomitant]
  5. GABAPENIN [Concomitant]
  6. LANTUS [Concomitant]
  7. NOVALOG [Concomitant]
  8. PROTONIX [Concomitant]
  9. BENTYL [Concomitant]
  10. LAMICTAL [Concomitant]
  11. GLUCOFAGE [Concomitant]
  12. CRESTOR [Concomitant]
  13. LEVOTHYROXINE SODIUM [Concomitant]
  14. PROMETHAZINE [Concomitant]
  15. ALPRAZOLAM (S-P) [Concomitant]
  16. METAMUCIL [Concomitant]

REACTIONS (1)
  - GENERALISED OEDEMA [None]
